FAERS Safety Report 4478779-2 (Version None)
Quarter: 2004Q4

REPORT INFORMATION
  Report Type: 
  Country: None (occurrence: None)
  Receive Date: 20040923
  Receipt Date: 20040528
  Transmission Date: 20050328
  Serious: No
  Sender: FDA-Public Use
  Company Number: USA040567250

PATIENT
  Age: 76 Year
  Sex: Female

DRUGS (1)
  1. FORTEO [Suspect]
     Indication: OSTEOPOROSIS
     Dates: start: 20040426

REACTIONS (7)
  - ASTHENIA [None]
  - COLD SWEAT [None]
  - DIZZINESS [None]
  - FEELING ABNORMAL [None]
  - NAUSEA [None]
  - RASH MACULAR [None]
  - VOMITING [None]
